FAERS Safety Report 10098594 (Version 1)
Quarter: 2014Q2

REPORT INFORMATION
  Report Type: Spontaneous
  Country: US (occurrence: US)
  Receive Date: 20140423
  Receipt Date: 20140423
  Transmission Date: 20141212
  Serious: No
  Sender: FDA-Public Use
  Company Number: US-BAYER-2014-057588

PATIENT
  Age: 56 Year
  Sex: Female

DRUGS (3)
  1. ALEVE CAPLET [Suspect]
  2. MOTRIN [Suspect]
  3. ADVIL [Suspect]

REACTIONS (1)
  - Abdominal discomfort [None]
